FAERS Safety Report 5241277-2 (Version None)
Quarter: 2007Q1

REPORT INFORMATION
  Report Type: 
  Country: None (occurrence: None)
  Receive Date: 20070220
  Receipt Date: 20070215
  Transmission Date: 20070707
  Serious: Yes (Death, Hospitalization)
  Sender: FDA-Public Use
  Company Number: US-JNJFOC-20070204121

PATIENT
  Age: 6 Decade
  Sex: Male

DRUGS (3)
  1. PREZISTA [Suspect]
     Indication: HIV INFECTION
     Route: 048
  2. TRUVADA [Concomitant]
     Indication: HIV INFECTION
     Route: 065
  3. RITONAVIR [Concomitant]
     Indication: HIV INFECTION
     Route: 048

REACTIONS (1)
  - HEPATITIS B [None]
